FAERS Safety Report 5235570-7 (Version None)
Quarter: 2007Q1

REPORT INFORMATION
  Report Type: 
  Country: None (occurrence: None)
  Receive Date: 20061208
  Receipt Date: 20060518
  Transmission Date: 20070707
  Serious: Yes (Other)
  Sender: FDA-Public Use
  Company Number: 2006UW09736

PATIENT
  Age: 77 Year
  Sex: Male
  Weight: 62.142 kg

DRUGS (1)
  1. CRESTOR [Suspect]
     Indication: BLOOD CHOLESTEROL INCREASED
     Dosage: 10 MG PO
     Route: 048
     Dates: start: 20060504

REACTIONS (2)
  - HYPOAESTHESIA [None]
  - MUSCULOSKELETAL PAIN [None]
